FAERS Safety Report 8811640 (Version 1)
Quarter: 2012Q4

REPORT INFORMATION
  Report Type: 
  Country: US (occurrence: None)
  Receive Date: 20120925
  Receipt Date: 20120925
  Transmission Date: 20130627
  Serious: Yes (Hospitalization)
  Sender: FDA-Public Use
  Company Number: None

PATIENT
  Age: 37 Year
  Sex: Female
  Weight: 62.05 kg

DRUGS (13)
  1. BUPIVACAINE [Suspect]
     Indication: NERVE BLOCK
     Dates: start: 20120627, end: 20120627
  2. AMITRIPTYLINE [Concomitant]
  3. SUBOXONE [Concomitant]
  4. IRON [Concomitant]
  5. TRAMADOL [Concomitant]
  6. VENLAFAXINE [Concomitant]
  7. OMEPRAZOLE [Concomitant]
  8. RANITIDINE [Concomitant]
  9. CYCLOBENZAPRINE [Concomitant]
  10. NEXIUM [Concomitant]
  11. IBUPROFEN [Concomitant]
  12. CONCERTA [Concomitant]
  13. MISOPROSTOL [Concomitant]

REACTIONS (4)
  - Convulsion [None]
  - Confusional state [None]
  - Disorientation [None]
  - Screaming [None]
